FAERS Safety Report 7492830-7 (Version None)
Quarter: 2011Q2

REPORT INFORMATION
  Report Type: 
  Country: None (occurrence: None)
  Receive Date: 20110520
  Receipt Date: 20110512
  Transmission Date: 20111010
  Serious: Yes (Other)
  Sender: FDA-Public Use
  Company Number: JP-BRISTOL-MYERS SQUIBB COMPANY-15747611

PATIENT
  Age: 64 Year
  Sex: Male

DRUGS (2)
  1. DOCETAXEL [Suspect]
     Indication: URETERIC CANCER
  2. PARAPLATIN [Suspect]
     Indication: URETERIC CANCER
     Route: 041

REACTIONS (1)
  - RECTAL STENOSIS [None]
